FAERS Safety Report 7830707-5 (Version None)
Quarter: 2011Q4

REPORT INFORMATION
  Report Type: 
  Country: None (occurrence: None)
  Receive Date: 20111019
  Receipt Date: 20111005
  Transmission Date: 20120403
  Serious: Yes (Hospitalization)
  Sender: FDA-Public Use
  Company Number: KAD201110-000023

PATIENT
  Age: 37 Year
  Sex: Female

DRUGS (5)
  1. FLUCONAZOLE [Suspect]
     Indication: CRYPTOCOCCOSIS
     Dosage: INTRAVENOUS     FOR TWO YEARS, ORAL
     Route: 042
  2. SULFASALAZINE [Concomitant]
  3. PREDNISONE [Concomitant]
  4. AMPHOTERICIN B [Suspect]
     Indication: CRYPTOCOCCOSIS
     Route: 042
  5. MESALAZINE (5 AMINOSALICYLATE) [Suspect]
     Indication: COLITIS ULCERATIVE
     Dosage: 4 GRAMS PER DAY

REACTIONS (10)
  - COLITIS ULCERATIVE [None]
  - DISEASE RECURRENCE [None]
  - DRUG EFFECT DECREASED [None]
  - LACUNAR INFARCTION [None]
  - CRYPTOCOCCOSIS [None]
  - DIPLOPIA [None]
  - PAPILLOEDEMA [None]
  - EYE MOVEMENT DISORDER [None]
  - OPTIC DISC HYPERAEMIA [None]
  - EMPTY SELLA SYNDROME [None]
